FAERS Safety Report 8481371 (Version 3)
Quarter: 2019Q4

REPORT INFORMATION
  Report Type: Spontaneous
  Country: US (occurrence: US)
  Receive Date: 20120329
  Receipt Date: 20191219
  Transmission Date: 20200122
  Serious: Yes (Other)
  Sender: FDA-Public Use
  Company Number: US-UCBSA-053903

PATIENT
  Sex: Male

DRUGS (2)
  1. CIMZIA [Suspect]
     Active Substance: CERTOLIZUMAB PEGOL
     Indication: RHEUMATOID ARTHRITIS
     Dosage: 400 MG 0-2-4 WEEKS AND LATER EVERY MONTH
     Route: 058
     Dates: start: 20110907, end: 201202
  2. METHOTREXATE. [Suspect]
     Active Substance: METHOTREXATE
     Dates: start: 201006, end: 201202

REACTIONS (1)
  - Leukaemic lymphoma [Unknown]

NARRATIVE: CASE EVENT DATE: 201202
